FAERS Safety Report 22017454 (Version 8)
Quarter: 2025Q1

REPORT INFORMATION
  Report Type: Report from Study
  Country: US (occurrence: US)
  Receive Date: 20230221
  Receipt Date: 20250324
  Transmission Date: 20250408
  Serious: Yes (Hospitalization, Other)
  Sender: JAZZ
  Company Number: US-JAZZ-2022-US-025647

PATIENT
  Age: 47 Year
  Sex: Female

DRUGS (41)
  1. XYWAV [Suspect]
     Active Substance: CALCIUM OXYBATE\MAGNESIUM OXYBATE\POTASSIUM OXYBATE\SODIUM OXYBATE
     Indication: Narcolepsy
     Dosage: 2.25 GRAM, BID
  2. XYWAV [Suspect]
     Active Substance: CALCIUM OXYBATE\MAGNESIUM OXYBATE\POTASSIUM OXYBATE\SODIUM OXYBATE
  3. XYWAV [Suspect]
     Active Substance: CALCIUM OXYBATE\MAGNESIUM OXYBATE\POTASSIUM OXYBATE\SODIUM OXYBATE
  4. HYDROXYZINE [Suspect]
     Active Substance: HYDROXYZINE HYDROCHLORIDE
     Indication: Product used for unknown indication
     Dates: start: 20221121
  5. SEROQUEL [Suspect]
     Active Substance: QUETIAPINE FUMARATE
     Indication: Product used for unknown indication
  6. ABILIFY [Concomitant]
     Active Substance: ARIPIPRAZOLE
     Indication: Product used for unknown indication
     Dates: start: 20220313
  7. DOXEPIN [Concomitant]
     Active Substance: DOXEPIN
     Indication: Product used for unknown indication
     Dates: start: 20211224
  8. LIPITOR [Concomitant]
     Active Substance: ATORVASTATIN CALCIUM
     Indication: Product used for unknown indication
     Dates: start: 20211224
  9. RITALIN LA [Concomitant]
     Active Substance: METHYLPHENIDATE HYDROCHLORIDE
     Indication: Product used for unknown indication
  10. SINEQUAN [Concomitant]
     Active Substance: DOXEPIN HYDROCHLORIDE
     Indication: Product used for unknown indication
  11. BEPOTASTINE BESYLATE [Concomitant]
     Active Substance: BEPOTASTINE BESYLATE
     Indication: Product used for unknown indication
  12. PREMARIN [Concomitant]
     Active Substance: ESTROGENS, CONJUGATED
     Indication: Product used for unknown indication
  13. PROVENTIL HFA [Concomitant]
     Active Substance: ALBUTEROL SULFATE
     Indication: Wheezing
     Dosage: 3 MILLILITER, Q4H (2.5MG/3ML)
  14. PROVENTIL HFA [Concomitant]
     Active Substance: ALBUTEROL SULFATE
     Indication: Dyspnoea
  15. NUVIGIL [Concomitant]
     Active Substance: ARMODAFINIL
     Indication: Product used for unknown indication
     Dates: start: 20230308
  16. ZONEGRAN [Concomitant]
     Active Substance: ZONISAMIDE
     Indication: Product used for unknown indication
     Dosage: 2 DOSAGE FORM, QD
     Route: 048
  17. NEURONTIN [Concomitant]
     Active Substance: GABAPENTIN
     Indication: Product used for unknown indication
  18. ESTRACE [Concomitant]
     Active Substance: ESTRADIOL
     Indication: Product used for unknown indication
     Dosage: 1 DOSAGE FORM, QD
     Route: 048
  19. ALBUTEROL SULFATE [Concomitant]
     Active Substance: ALBUTEROL SULFATE
     Indication: Dyspnoea
  20. LOTEMAX [Concomitant]
     Active Substance: LOTEPREDNOL ETABONATE
     Indication: Product used for unknown indication
     Dosage: 1 DROP, BID (IN MORNING AND AT BEDTIME)
     Dates: start: 20210511
  21. TIMOPTIC [Concomitant]
     Active Substance: TIMOLOL MALEATE
     Indication: Product used for unknown indication
     Dates: start: 20210427
  22. UBRELVY [Concomitant]
     Active Substance: UBROGEPANT
     Indication: Product used for unknown indication
  23. VITAMIN C [Concomitant]
     Active Substance: ASCORBIC ACID
     Indication: Product used for unknown indication
     Dosage: 1 DOSAGE FORM, QD
     Route: 048
  24. TRINTELLIX [Concomitant]
     Active Substance: VORTIOXETINE HYDROBROMIDE
     Indication: Product used for unknown indication
  25. VISTARIL [Concomitant]
     Active Substance: HYDROXYZINE PAMOATE
     Indication: Product used for unknown indication
     Dates: start: 20230104
  26. REMERON [Concomitant]
     Active Substance: MIRTAZAPINE
     Indication: Product used for unknown indication
  27. ATARAX [Concomitant]
     Active Substance: HYDROXYZINE HYDROCHLORIDE
     Indication: Product used for unknown indication
     Dates: start: 20221121
  28. ASPIRIN [Concomitant]
     Active Substance: ASPIRIN
     Indication: Product used for unknown indication
     Dosage: 1 UNK, QD
     Route: 048
     Dates: start: 20220915
  29. VIIBRYD [Concomitant]
     Active Substance: VILAZODONE HYDROCHLORIDE
     Indication: Product used for unknown indication
     Route: 048
     Dates: start: 20230620
  30. VILAZODONE HYDROCHLORIDE [Concomitant]
     Active Substance: VILAZODONE HYDROCHLORIDE
     Indication: Product used for unknown indication
     Dates: start: 20230620
  31. CANNABIS SATIVA SUBSP. INDICA TOP [Concomitant]
     Active Substance: CANNABIS SATIVA SUBSP. INDICA TOP
     Dates: start: 20230315
  32. LORAZEPAM [Concomitant]
     Active Substance: LORAZEPAM
     Indication: Product used for unknown indication
  33. DELTASONE [Concomitant]
     Active Substance: PREDNISONE
     Indication: Product used for unknown indication
     Dosage: 1 DOSAGE FORM, QD
     Route: 048
  34. ARMODAFINIL [Concomitant]
     Active Substance: ARMODAFINIL
     Indication: Product used for unknown indication
     Dosage: 1 DOSAGE FORM, QD
     Route: 048
  35. CLOBETASOL [Concomitant]
     Active Substance: CLOBETASOL
     Indication: Product used for unknown indication
  36. BACTROBAN [Concomitant]
     Active Substance: MUPIROCIN CALCIUM
     Indication: Product used for unknown indication
  37. ZOFRAN [Concomitant]
     Active Substance: ONDANSETRON HYDROCHLORIDE
     Indication: Vomiting
     Dosage: 1 DOSAGE FORM, TID AS NEEDED
     Route: 048
  38. ZOFRAN [Concomitant]
     Active Substance: ONDANSETRON HYDROCHLORIDE
     Indication: Nausea
  39. ANORO ELLIPTA [Concomitant]
     Active Substance: UMECLIDINIUM BROMIDE\VILANTEROL TRIFENATATE
     Indication: Product used for unknown indication
  40. TYLENOL [Concomitant]
     Active Substance: ACETAMINOPHEN
     Indication: Product used for unknown indication
     Dosage: 1 DOSAGE FORM, Q8H AS NEEDED
     Route: 048
  41. ERGOCALCIFEROL [Concomitant]
     Active Substance: ERGOCALCIFEROL
     Indication: Product used for unknown indication

REACTIONS (15)
  - Limb operation [Unknown]
  - Seizure [Unknown]
  - Chest pain [Unknown]
  - Disability [Unknown]
  - Peripheral swelling [Unknown]
  - Axillary pain [Unknown]
  - COVID-19 [Unknown]
  - Oropharyngeal discomfort [Not Recovered/Not Resolved]
  - Stress [Unknown]
  - Axillary mass [Recovered/Resolved]
  - Dyspnoea [Unknown]
  - Fatigue [Unknown]
  - Catheterisation cardiac [Unknown]
  - Product dose omission issue [Unknown]
  - Intentional dose omission [Unknown]

NARRATIVE: CASE EVENT DATE: 20220901
